FAERS Safety Report 24605236 (Version 1)
Quarter: 2024Q4

REPORT INFORMATION
  Report Type: Spontaneous
  Country: DE (occurrence: DE)
  Receive Date: 20241111
  Receipt Date: 20241111
  Transmission Date: 20250115
  Serious: Yes (Hospitalization, Other)
  Sender: MYLAN
  Company Number: DE-PFIZER INC-PV202400136331

PATIENT
  Age: 8 Year
  Sex: Female
  Weight: 29 kg

DRUGS (4)
  1. LEVETIRACETAM [Suspect]
     Active Substance: LEVETIRACETAM
     Indication: Generalised tonic-clonic seizure
     Dosage: UNK
     Route: 065
     Dates: start: 2022
  2. LEVETIRACETAM [Suspect]
     Active Substance: LEVETIRACETAM
     Dosage: DOSE INCREASED
     Route: 065
     Dates: start: 2024
  3. MIDAZOLAM [Concomitant]
     Active Substance: MIDAZOLAM
     Indication: Generalised tonic-clonic seizure
     Dosage: UNK
     Route: 065
  4. SULTHIAME [Concomitant]
     Active Substance: SULTHIAME
     Indication: Generalised tonic-clonic seizure
     Dosage: UNK
     Route: 065

REACTIONS (4)
  - Electroencephalogram abnormal [Recovering/Resolving]
  - Atonic seizures [Recovering/Resolving]
  - Anticonvulsant drug level increased [Unknown]
  - Drug ineffective [Unknown]

NARRATIVE: CASE EVENT DATE: 20240101
